FAERS Safety Report 18943421 (Version 1)
Quarter: 2021Q1

REPORT INFORMATION
  Report Type: Spontaneous
  Country: NL (occurrence: NL)
  Receive Date: 20210226
  Receipt Date: 20210226
  Transmission Date: 20210420
  Serious: Yes (Life-Threatening)
  Sender: FDA-Public Use
  Company Number: NL-TEVA-2021-NL-1883125

PATIENT
  Age: 66 Year
  Sex: Male
  Weight: 88 kg

DRUGS (6)
  1. RIFAMPICINE CAPSULE 300MG / BRAND NAME NOT SPECIFIED [Concomitant]
     Dosage: 300 MG (MILLIGRAM); THERAPY START DATE; THERAPY END DATE : ASKED BUT UNKNOWN
  2. BUDESONIDE/FORMOTEROL INHP  200/6UG/DO / SYMBICORT TURBUHALER INHALPDR [Concomitant]
     Dosage: 200/6 UG / DOSE (MICROGRAMS PER DOSE); THERAPY START DATE; THERAPY END DATE : ASKED BUT UNKNOWN
  3. CIPROFLOXACINE TABLET 750MG / BRAND NAME NOT SPECIFIED [Suspect]
     Active Substance: CIPROFLOXACIN
     Indication: INFECTION
     Dosage: 1500 MILLIGRAM DAILY;
     Dates: start: 20210126, end: 20210128
  4. SALBUTAMOL AEROSOL 100UG/DO / BRAND NAME NOT SPECIFIED [Concomitant]
     Dosage: AEROSOL, 100 UG / DOSE (MICROGRAMS PER DOSE); THERAPY START DATE; THERAPY END DATE : ASKU
  5. ETORICOXIB TABLET FO  60MG / BRAND NAME NOT SPECIFIED [Concomitant]
     Dosage: 60 MG (MILLIGRAM); THERAPY START DATE; THERAPY END DATE : ASKED BUT UNKNOWN
  6. OXYCODON TABLET MGA   5MG / BRAND NAME NOT SPECIFIED [Concomitant]
     Active Substance: OXYCODONE
     Dosage: 5 MG (MILLIGRAM); THERAPY START DATE; THERAPY END DATE : ASKED BUT UNKNOWN

REACTIONS (5)
  - Restlessness [Recovered/Resolved]
  - Myalgia [Recovered/Resolved]
  - Asthenia [Recovered/Resolved]
  - Panic attack [Recovered/Resolved]
  - Suicidal ideation [Recovered/Resolved]

NARRATIVE: CASE EVENT DATE: 20210126
